FAERS Safety Report 25270609 (Version 3)
Quarter: 2025Q3

REPORT INFORMATION
  Report Type: Spontaneous
  Country: US (occurrence: US)
  Receive Date: 20250505
  Receipt Date: 20250814
  Transmission Date: 20251020
  Serious: No
  Sender: BIOGEN
  Company Number: US-BIOGEN-2025BI01309386

PATIENT
  Sex: Male
  Weight: 54.48 kg

DRUGS (1)
  1. SPINRAZA [Suspect]
     Active Substance: NUSINERSEN
     Indication: Spinal muscular atrophy
     Dosage: PHYSICIAN TO?ADMINISTER 12MG/5ML?INTRATHECALLY ONCE?EVERY 4 MONTHS
     Route: 050

REACTIONS (5)
  - Underweight [Unknown]
  - Autonomic nervous system imbalance [Unknown]
  - Back pain [Unknown]
  - Headache [Unknown]
  - Rash [Unknown]
